FAERS Safety Report 16103662 (Version 1)
Quarter: 2019Q1

REPORT INFORMATION
  Report Type: Spontaneous
  Country: US (occurrence: US)
  Receive Date: 20190322
  Receipt Date: 20190322
  Transmission Date: 20190418
  Serious: No
  Sender: FDA-Public Use
  Company Number: US-JNJFOC-20190301997

PATIENT

DRUGS (1)
  1. DARZALEX [Suspect]
     Active Substance: DARATUMUMAB
     Indication: PRODUCT USED FOR UNKNOWN INDICATION
     Dosage: TOTAL STRENGTH 16 MG/KG AND WAS GIVING IN SPLIT DOSE OF 8 MG/KG
     Route: 042

REACTIONS (2)
  - Cough [Unknown]
  - Infusion related reaction [Unknown]
